FAERS Safety Report 6122220-0 (Version None)
Quarter: 2009Q1

REPORT INFORMATION
  Report Type: 
  Country: None (occurrence: None)
  Receive Date: 20090316
  Receipt Date: 20090305
  Transmission Date: 20090719
  Serious: Yes (Death)
  Sender: FDA-Public Use
  Company Number: GXKR2008GB07521

PATIENT
  Age: 56 Year
  Sex: Female
  Weight: 75 kg

DRUGS (18)
  1. GABAPENTIN [Suspect]
     Indication: PAIN
     Dosage: 600 MG, TID, ORAL
     Route: 048
     Dates: start: 20080401, end: 20080506
  2. BENDROFLUAZIDE (BENDROFLUAZIDE) [Concomitant]
  3. IBUPROFEN [Concomitant]
  4. NORETHISTERONE (NORETHISTERONE) [Concomitant]
  5. ORAMORPH SR [Concomitant]
  6. RABEPRAZOLE SODIUM [Concomitant]
  7. VALSARTAN [Concomitant]
  8. VENLFAXINE (VENLAFAXINE) [Concomitant]
  9. INFUMORPH [Concomitant]
  10. INFUMORPH [Concomitant]
  11. METOCLOPRAMIDE [Concomitant]
  12. MOVICOL (MACROGOL, POTASSIUM CHLORIDE, SODIUM BICARBONATE, SODIUM CHLO [Concomitant]
  13. TRAMADOL HCL [Concomitant]
  14. AMITRIPTYLINE HYDROCHLORIDE [Concomitant]
  15. CO-DANTHRAMER (DANTRON, POLOXAMER) [Concomitant]
  16. GAVISCON /OLD FORM/ (ALGINIC ACID, ALUMINUIM HYDROXIDE GEL, DRIED, MAG [Concomitant]
  17. MEGACE [Concomitant]
  18. MICRALAX (SODIUM CITRATE, SODIUM LAURYL SULFOACETATE) [Concomitant]

REACTIONS (19)
  - ACIDOSIS [None]
  - ALANINE AMINOTRANSFERASE INCREASED [None]
  - ASTERIXIS [None]
  - BLOOD ALKALINE PHOSPHATASE INCREASED [None]
  - COAGULOPATHY [None]
  - CONFUSIONAL STATE [None]
  - FLUID OVERLOAD [None]
  - GAMMA-GLUTAMYLTRANSFERASE INCREASED [None]
  - GENERAL PHYSICAL HEALTH DETERIORATION [None]
  - HAEMOGLOBIN DECREASED [None]
  - HEPATIC FUNCTION ABNORMAL [None]
  - HYPOTENSION [None]
  - JUGULAR VEIN DISTENSION [None]
  - LIVER PALPABLE SUBCOSTAL [None]
  - MALAISE [None]
  - MUSCLE TWITCHING [None]
  - RENAL FAILURE ACUTE [None]
  - SOMNOLENCE [None]
  - WHEEZING [None]
